FAERS Safety Report 5879458-7 (Version None)
Quarter: 2008Q3

REPORT INFORMATION
  Report Type: 
  Country: None (occurrence: None)
  Receive Date: 20080912
  Receipt Date: 20080902
  Transmission Date: 20090109
  Serious: Yes (Hospitalization, Other)
  Sender: FDA-Public Use
  Company Number: PHHO2008JP10322

PATIENT
  Sex: Female

DRUGS (9)
  1. ICL670A ICL+DISTAB [Suspect]
     Indication: HAEMOSIDEROSIS
     Dosage: 875 MG DAILY
     Route: 048
     Dates: start: 20080310
  2. ICL670A ICL+DISTAB [Suspect]
     Dosage: 250 MG, DAILY
     Route: 048
     Dates: start: 20080604, end: 20080825
  3. LASIX [Concomitant]
     Indication: OEDEMA
     Dosage: UNK
     Dates: start: 20070717, end: 20080825
  4. ONEALFA [Concomitant]
     Indication: OSTEOPOROSIS
     Dosage: UNK
     Dates: end: 20080825
  5. PREDNISOLONE [Concomitant]
     Indication: SYSTEMIC LUPUS ERYTHEMATOSUS
     Dosage: UNK
     Dates: start: 20071203, end: 20080825
  6. NEORAL [Concomitant]
     Indication: APLASTIC ANAEMIA
     Dosage: UNK
     Dates: start: 20080303, end: 20080825
  7. AMARYL [Concomitant]
     Indication: DIABETES MELLITUS
     Dosage: UNK
     Dates: start: 20071203, end: 20080825
  8. PRIMOBOLAN [Concomitant]
     Indication: APLASTIC ANAEMIA
     Dosage: UNK
     Dates: start: 20070502, end: 20080825
  9. BASEN [Concomitant]
     Indication: DIABETES MELLITUS
     Dosage: UNK
     Dates: start: 20080624, end: 20080825

REACTIONS (24)
  - ANAEMIA [None]
  - ANGIOPATHY [None]
  - AORTIC VALVE INCOMPETENCE [None]
  - ASCITES [None]
  - BRONCHIECTASIS [None]
  - CARDIAC FAILURE [None]
  - CHEST X-RAY ABNORMAL [None]
  - DEPRESSED LEVEL OF CONSCIOUSNESS [None]
  - DILATATION ATRIAL [None]
  - FAECES DISCOLOURED [None]
  - GASTROINTESTINAL ANGIODYSPLASIA [None]
  - HYPOGLYCAEMIA [None]
  - LEFT VENTRICULAR HYPERTROPHY [None]
  - LOWER GASTROINTESTINAL HAEMORRHAGE [None]
  - LUNG DISORDER [None]
  - MITRAL VALVE INCOMPETENCE [None]
  - OBLITERATIVE BRONCHIOLITIS [None]
  - OXYGEN SATURATION DECREASED [None]
  - PERICARDIAL EFFUSION [None]
  - PULMONARY BULLA [None]
  - PULMONARY CONGESTION [None]
  - PULMONARY FIBROSIS [None]
  - PULMONARY HYPERTENSION [None]
  - PYREXIA [None]
